FAERS Safety Report 10218627 (Version 1)
Quarter: 2014Q2

REPORT INFORMATION
  Report Type: Spontaneous
  Country: US (occurrence: US)
  Receive Date: 20140605
  Receipt Date: 20140605
  Transmission Date: 20141212
  Serious: No
  Sender: FDA-Public Use
  Company Number: US-PFIZER INC-2014150736

PATIENT
  Sex: Female

DRUGS (4)
  1. PREMPRO [Suspect]
     Indication: HOT FLUSH
     Dosage: UNK
  2. PREMPRO [Suspect]
     Indication: DYSPAREUNIA
  3. PREMARIN [Suspect]
     Indication: HOT FLUSH
     Dosage: UNK
  4. PREMARIN [Suspect]
     Indication: DYSPAREUNIA

REACTIONS (1)
  - Drug ineffective [Unknown]
